FAERS Safety Report 10619963 (Version 1)
Quarter: 2014Q4

REPORT INFORMATION
  Report Type: Spontaneous
  Country: IT (occurrence: None)
  Receive Date: 20141128
  Receipt Date: 20141128
  Transmission Date: 20150529
  Serious: Yes (Death)
  Sender: FDA-Public Use
  Company Number: IMP_08239_2014

PATIENT
  Age: 39 Year
  Sex: Male

DRUGS (1)
  1. BACLOFEN (BACLOFEN) [Suspect]
     Active Substance: BACLOFEN
     Indication: REHABILITATION THERAPY
     Dosage: BOLUS INTRATHECAL

REACTIONS (3)
  - Cardiac arrest [None]
  - Bradycardia [None]
  - Bundle branch block right [None]
